FAERS Safety Report 9303695 (Version 1)
Quarter: 2013Q2

REPORT INFORMATION
  Report Type: Spontaneous
  Country: US (occurrence: US)
  Receive Date: 20130522
  Receipt Date: 20130522
  Transmission Date: 20140414
  Serious: Yes (Hospitalization)
  Sender: FDA-Public Use
  Company Number: US-GLAXOSMITHKLINE-A0690187A

PATIENT
  Age: 49 Year
  Sex: Female
  Weight: 91.8 kg

DRUGS (7)
  1. AVANDIA [Suspect]
     Indication: TYPE 2 DIABETES MELLITUS
     Dosage: 4MG TWICE PER DAY
     Route: 048
     Dates: start: 20050204, end: 200702
  2. AVANDAMET [Suspect]
     Indication: TYPE 2 DIABETES MELLITUS
     Route: 048
     Dates: start: 20041120, end: 20050204
  3. GLUCOPHAGE [Concomitant]
  4. METFORMIN [Concomitant]
  5. DIABETA [Concomitant]
  6. GLUCOTROL [Concomitant]
  7. ALBUTEROL [Concomitant]

REACTIONS (3)
  - Myocardial infarction [Not Recovered/Not Resolved]
  - Pain [Unknown]
  - Injury [Unknown]
